FAERS Safety Report 26028010 (Version 2)
Quarter: 2025Q4

REPORT INFORMATION
  Report Type: Spontaneous
  Country: US (occurrence: US)
  Receive Date: 20251111
  Receipt Date: 20251117
  Transmission Date: 20260117
  Serious: No
  Sender: ELI LILLY AND COMPANY
  Company Number: US-ELI_LILLY_AND_COMPANY-US202510037193

PATIENT
  Age: 38 Year
  Sex: Female

DRUGS (1)
  1. ZEPBOUND [Suspect]
     Active Substance: TIRZEPATIDE
     Indication: Weight control
     Dosage: 2.5 MG, UNKNOWN
     Route: 065
     Dates: start: 20251025

REACTIONS (10)
  - Haematemesis [Unknown]
  - Haematochezia [Unknown]
  - Dry eye [Unknown]
  - Vitreous floaters [Unknown]
  - Decreased activity [Unknown]
  - Vision blurred [Unknown]
  - Weight decreased [Unknown]
  - Dehydration [Unknown]
  - Vomiting [Unknown]
  - Nausea [Unknown]

NARRATIVE: CASE EVENT DATE: 20251026
